FAERS Safety Report 4698094-1 (Version None)
Quarter: 2005Q2

REPORT INFORMATION
  Report Type: 
  Country: None (occurrence: None)
  Receive Date: 20050622
  Receipt Date: 20050614
  Transmission Date: 20051028
  Serious: Yes (Hospitalization)
  Sender: FDA-Public Use
  Company Number: GXKR2005PL01161

PATIENT
  Sex: Male
  Weight: 88 kg

DRUGS (9)
  1. ISOSORBIDE DINITRATE [Suspect]
     Dosage: 10 MG, ORAL
     Route: 048
     Dates: end: 20050418
  2. ISOSORBIDE MONONITRATE [Suspect]
     Dosage: 100 MG, ORAL
     Route: 048
     Dates: end: 20050418
  3. ISOSORBIDE MONONITRATE [Suspect]
     Dosage: 60 MG,
     Dates: end: 20050418
  4. INHIBACE ^HOFFMANN^ (CILAZAPRIL) [Suspect]
     Dosage: 2.5 MG, ORAL
     Route: 048
     Dates: end: 20050408
  5. ENALAPRIL MALEATE [Suspect]
     Dosage: 10 MG, ORAL
     Route: 048
     Dates: end: 20050418
  6. DILTIAZEM HYDROCHLORIDE [Suspect]
     Dosage: 60 MG, ORAL
     Route: 048
     Dates: end: 20050418
  7. INDAPAMIDE [Suspect]
     Dosage: 1.5 MG, ORAL
     Route: 048
     Dates: end: 20050418
  8. MOLSIDOMINA (MOLSIDOMINE) [Suspect]
     Dosage: 4 MG, ORAL
     Route: 048
     Dates: end: 20050418
  9. SIMVASTATIN [Suspect]
     Dosage: 20 MG, ORAL
     Route: 048
     Dates: end: 20050418

REACTIONS (2)
  - HYPOTENSION [None]
  - ILL-DEFINED DISORDER [None]
